FAERS Safety Report 4972577-9 (Version None)
Quarter: 2006Q1

REPORT INFORMATION
  Report Type: 
  Country: None (occurrence: None)
  Receive Date: 20060216
  Receipt Date: 20051028
  Transmission Date: 20060701
  Serious: No
  Sender: FDA-Public Use
  Company Number: TPA2005A01355

PATIENT
  Age: 58 Year
  Sex: Female

DRUGS (5)
  1. ROZEREM [Suspect]
     Indication: INSOMNIA
     Dosage: SEE IMAGE
     Route: 048
     Dates: end: 20051028
  2. ROZEREM [Suspect]
     Indication: INSOMNIA
     Dosage: SEE IMAGE
     Route: 048
     Dates: start: 20051014
  3. SEROQUEL [Concomitant]
  4. ATENOLOL [Concomitant]
  5. KLONOPIN [Concomitant]

REACTIONS (2)
  - INSOMNIA [None]
  - INTENTIONAL OVERDOSE [None]
